FAERS Safety Report 6834349-X (Version None)
Quarter: 2010Q3

REPORT INFORMATION
  Report Type: 
  Country: None (occurrence: None)
  Receive Date: 20100712
  Receipt Date: 20070531
  Transmission Date: 20110219
  Serious: No
  Sender: FDA-Public Use
  Company Number: US-PFIZER INC-2007025260

PATIENT
  Sex: Female

DRUGS (8)
  1. CHANTIX [Suspect]
     Indication: SMOKING CESSATION THERAPY
     Dates: start: 20070309, end: 20070329
  2. ATENOLOL [Concomitant]
     Indication: HYPERTENSION
  3. INDAPAMIDE [Concomitant]
     Indication: HYPERTENSION
  4. PREMARIN [Concomitant]
  5. ACETYLSALICYLIC ACID [Concomitant]
  6. PROTONIX [Concomitant]
  7. VITAMINS [Concomitant]
  8. MINERAL TAB [Concomitant]

REACTIONS (5)
  - BEDRIDDEN [None]
  - DYSPNOEA [None]
  - MUSCULOSKELETAL CHEST PAIN [None]
  - NAUSEA [None]
  - RENAL PAIN [None]
